FAERS Safety Report 9170520 (Version 1)
Quarter: 2013Q1

REPORT INFORMATION
  Report Type: Spontaneous
  Country: DK (occurrence: None)
  Receive Date: 20130311
  Receipt Date: 20130311
  Transmission Date: 20140127
  Serious: Yes (Hospitalization)
  Sender: FDA-Public Use
  Company Number: 2013-03840

PATIENT
  Age: 40 Year
  Sex: Female

DRUGS (3)
  1. PACLITAXEL [Suspect]
     Indication: OVARIAN CANCER
     Route: 042
     Dates: start: 20110801, end: 20110801
  2. CARBOPLATIN (WATSON LABORATORIES) (CARBOPLATIN) UNK, UNKUNK? [Suspect]
     Indication: OVARIAN CANCER
     Route: 042
     Dates: start: 20110801, end: 20110801
  3. BIBF 1120 (BIBF 1120) [Concomitant]

REACTIONS (4)
  - Febrile neutropenia [None]
  - Blood potassium decreased [None]
  - Blood magnesium decreased [None]
  - Haemoglobin abnormal [None]
